FAERS Safety Report 8316320-4 (Version None)
Quarter: 2012Q2

REPORT INFORMATION
  Report Type: 
  Country: None (occurrence: None)
  Receive Date: 20120427
  Receipt Date: 20120425
  Transmission Date: 20120825
  Serious: No
  Sender: FDA-Public Use
  Company Number: US-PFIZER INC-2012102654

PATIENT
  Sex: Female
  Weight: 56.236 kg

DRUGS (4)
  1. PREMARIN [Suspect]
     Indication: OVARIAN DISORDER
     Dosage: 0.9 MG, DAILY
     Dates: start: 20020101
  2. THEO-24 [Concomitant]
     Indication: ASTHMA
     Dosage: 400 MG, 2X/DAY
  3. EFFEXOR XR [Suspect]
     Indication: DEPRESSION
     Dosage: 75 MG, DAILY
     Dates: start: 20020101
  4. EFFEXOR XR [Suspect]
     Indication: HOT FLUSH

REACTIONS (1)
  - LARYNGITIS [None]
